FAERS Safety Report 16815482 (Version 1)
Quarter: 2019Q3

REPORT INFORMATION
  Report Type: Report from Study
  Country: IT (occurrence: IT)
  Receive Date: 20190917
  Receipt Date: 20190917
  Transmission Date: 20191005
  Serious: Yes (Other)
  Sender: FDA-Public Use
  Company Number: IT-TEVA-2019-IT-1107004

PATIENT
  Age: 38 Year
  Sex: Female

DRUGS (4)
  1. DEPAKIN [Suspect]
     Active Substance: VALPROATE SODIUM
     Route: 065
  2. ALPRAZOLAM. [Suspect]
     Active Substance: ALPRAZOLAM
     Route: 065
  3. KETOPROFEN. [Suspect]
     Active Substance: KETOPROFEN
     Route: 048
  4. SERENASE (HALOPERIDOL) [Suspect]
     Active Substance: HALOPERIDOL
     Route: 065

REACTIONS (4)
  - Conjunctival haemorrhage [Unknown]
  - Vision blurred [Unknown]
  - Vertigo [Unknown]
  - Eye haemorrhage [Unknown]

NARRATIVE: CASE EVENT DATE: 20190516
